FAERS Safety Report 11449780 (Version 1)
Quarter: 2015Q3

REPORT INFORMATION
  Report Type: Spontaneous
  Country: US (occurrence: US)
  Receive Date: 20150903
  Receipt Date: 20150903
  Transmission Date: 20151125
  Serious: No
  Sender: FDA-Public Use
  Company Number: US-ROCHE-1038598

PATIENT
  Sex: Female

DRUGS (2)
  1. PEG-INTERFERON ALFA 2A [Suspect]
     Active Substance: PEGINTERFERON ALFA-2A
     Indication: CHRONIC HEPATITIS C
     Route: 058
     Dates: start: 20120130
  2. RIBAVIRIN. [Suspect]
     Active Substance: RIBAVIRIN
     Indication: CHRONIC HEPATITIS C
     Route: 048
     Dates: start: 20120130

REACTIONS (13)
  - Headache [Unknown]
  - Arthralgia [Unknown]
  - Chills [Unknown]
  - Malaise [Unknown]
  - Alopecia [Unknown]
  - White blood cell count decreased [Unknown]
  - Constipation [Unknown]
  - Fatigue [Unknown]
  - Anaemia [Unknown]
  - Insomnia [Unknown]
  - Myalgia [Unknown]
  - Sinusitis [Unknown]
  - Irritability [Unknown]
